FAERS Safety Report 4468839-4 (Version None)
Quarter: 2004Q3

REPORT INFORMATION
  Report Type: 
  Country: None (occurrence: None)
  Receive Date: 20040917
  Receipt Date: 20040608
  Transmission Date: 20050211
  Serious: No
  Sender: FDA-Public Use
  Company Number: US-JNJFOC-20040603116

PATIENT
  Age: 40 Year
  Sex: Female
  Weight: 65.7716 kg

DRUGS (4)
  1. ORTHO EVRA [Suspect]
     Indication: CONTRACEPTION
     Dosage: 1 DOSE(S), 3 IN 4 WEEK, TRANSDERMAL
     Route: 062
     Dates: start: 20040606
  2. ZANTAC [Concomitant]
  3. LEVICIN (ALL OTHER THERAPEUTIC PRODUCTS) [Concomitant]
  4. TYLENOL W/CODEINE (PANADEINE CO) [Concomitant]

REACTIONS (7)
  - ADVERSE DRUG REACTION [None]
  - BACK PAIN [None]
  - DIARRHOEA [None]
  - DIZZINESS [None]
  - DYSMENORRHOEA [None]
  - HEADACHE [None]
  - HYPERHIDROSIS [None]
